FAERS Safety Report 8909238 (Version 2)
Quarter: 2014Q2

REPORT INFORMATION
  Report Type: Spontaneous
  Country: FR (occurrence: None)
  Receive Date: 20121107
  Receipt Date: 20140610
  Transmission Date: 20141212
  Serious: Yes (Hospitalization, Disabling)
  Sender: FDA-Public Use
  Company Number: 2012-003875

PATIENT
  Age: 64 Year
  Sex: Female
  Weight: 55 kg

DRUGS (4)
  1. ACTONEL [Suspect]
     Indication: OSTEOPOROSIS
     Dosage: 75 MG, FREQUENCY UNKNOWN, ORAL
     Route: 048
     Dates: start: 20051018
  2. ROACTEMRA [Suspect]
     Indication: RHEUMATOID ARTHRITIS
     Dosage: 480 MG EVERY FOUR WEEKS, INTRAVENOUS
     Route: 042
     Dates: start: 20100518
  3. CORTANCYL [Suspect]
     Indication: RHEUMATOID ARTHRITIS
     Route: 048
     Dates: start: 19970219
  4. METHOTREXATE (METHOTREXATE) [Suspect]
     Dates: start: 20010530, end: 20120412

REACTIONS (4)
  - Cerebrovascular accident [None]
  - High density lipoprotein decreased [None]
  - Hemiplegia [None]
  - Dysarthria [None]
